FAERS Safety Report 21270325 (Version 8)
Quarter: 2023Q1

REPORT INFORMATION
  Report Type: Report from Study
  Country: US (occurrence: US)
  Receive Date: 20220830
  Receipt Date: 20230222
  Transmission Date: 20230417
  Serious: No
  Sender: FDA-Public Use
  Company Number: US-NOVARTISTESTPH-NVSC2022US194259

PATIENT
  Age: 44 Year
  Sex: Female

DRUGS (2)
  1. KESIMPTA [Suspect]
     Active Substance: OFATUMUMAB
     Indication: Relapsing multiple sclerosis
     Dosage: 20 MG, QMO
     Route: 058
     Dates: start: 20220824
  2. INSULIN NOS [Suspect]
     Active Substance: INSULIN NOS
     Indication: Diabetes mellitus
     Dosage: UNK
     Route: 065

REACTIONS (12)
  - Temperature intolerance [Unknown]
  - Seasonal affective disorder [Unknown]
  - Migraine [Unknown]
  - Sluggishness [Unknown]
  - Yawning [Unknown]
  - Affective disorder [Unknown]
  - Anger [Unknown]
  - General physical health deterioration [Unknown]
  - Blood glucose fluctuation [Unknown]
  - Cognitive disorder [Unknown]
  - Headache [Unknown]
  - Fatigue [Unknown]

NARRATIVE: CASE EVENT DATE: 20220826
